FAERS Safety Report 8231524-7 (Version None)
Quarter: 2012Q1

REPORT INFORMATION
  Report Type: 
  Country: None (occurrence: None)
  Receive Date: 20120323
  Receipt Date: 20120320
  Transmission Date: 20120608
  Serious: Yes (Death, Hospitalization, Other)
  Sender: FDA-Public Use
  Company Number: PHFR2011GB06299

PATIENT
  Sex: Male

DRUGS (10)
  1. SIMVASTATIN [Concomitant]
     Dosage: 40 MG, QD
  2. FOLIC ACID [Concomitant]
     Dosage: UNK UKN, UNK
  3. ASPIRIN [Concomitant]
     Dosage: 75 MG, QD
  4. ALFACALCIDOL [Concomitant]
     Dosage: UNK UKN, UNK
  5. VITAMIN B COMPLEX CAP [Concomitant]
     Dosage: UNK UKN, UNK
  6. CLOZARIL [Suspect]
     Indication: SCHIZOPHRENIA
     Dosage: 300 MG, DAILY
     Route: 048
     Dates: start: 20070531, end: 20110715
  7. AMLODIPINE [Concomitant]
     Dosage: 5 G, QD
  8. LANSOPRAZOLE [Concomitant]
     Dosage: 30 MG, QD
  9. DIPYRIDAMOLE [Concomitant]
     Dosage: 300 MG, QD
  10. HALOPERIDOL [Concomitant]
     Dosage: 5 MG, BID

REACTIONS (4)
  - DIALYSIS [None]
  - DIARRHOEA [None]
  - RENAL FAILURE [None]
  - ABDOMINAL DISCOMFORT [None]
